FAERS Safety Report 5780132-6 (Version None)
Quarter: 2008Q2

REPORT INFORMATION
  Report Type: 
  Country: None (occurrence: None)
  Receive Date: 20080620
  Receipt Date: 20080606
  Transmission Date: 20081010
  Serious: Yes (Disabling)
  Sender: FDA-Public Use
  Company Number: FR-ROCHE-569267

PATIENT
  Sex: Male

DRUGS (8)
  1. KYTRIL [Suspect]
     Indication: DRUG USE FOR UNKNOWN INDICATION
     Dosage: FORM: INJECTABLE SOLUTION. FREQUENCY REPORTED AS EVERY DAY.
     Route: 042
     Dates: start: 20040609, end: 20050629
  2. METHYLPREDNISOLONE [Suspect]
     Indication: DRUG USE FOR UNKNOWN INDICATION
     Route: 042
     Dates: start: 20040609, end: 20050629
  3. TAXOTERE [Suspect]
     Indication: SARCOMA
     Dosage: FORM: INJECTABLE SOLUTION
     Route: 042
     Dates: start: 20040609, end: 20050221
  4. GEMZAR [Suspect]
     Indication: SARCOMA
     Dosage: FORM: INJECTABLE SOLUTION
     Route: 042
     Dates: start: 20040609, end: 20050629
  5. GEMZAR [Suspect]
     Dosage: CYCLE 1 STARTED ON 29 OCT 2007, CYCLE 4 STARTED ON 11 JAN 2008
     Route: 042
  6. NEXIUM [Suspect]
     Indication: DRUG USE FOR UNKNOWN INDICATION
     Dosage: DOSE UNCHANGED
     Route: 048
     Dates: start: 20050401
  7. CARDENSIEL [Suspect]
     Dosage: DOSAGE REGIMEN: 2.5 THEN 1. DOSE UNCHANGED
     Route: 048
  8. LEVOTHYROXINE SODIUM [Suspect]
     Indication: HYPOTHYROIDISM
     Dosage: DOSE UNCHANGED
     Route: 048

REACTIONS (1)
  - HYPERCREATININAEMIA [None]
